FAERS Safety Report 11167902 (Version 1)
Quarter: 2015Q2

REPORT INFORMATION
  Report Type: Spontaneous
  Country: FR (occurrence: FR)
  Receive Date: 20150605
  Receipt Date: 20150605
  Transmission Date: 20150821
  Serious: Yes (Other)
  Sender: FDA-Public Use
  Company Number: FR-UCBSA-2015014200

PATIENT
  Age: 31 Year
  Sex: Female
  Weight: 62 kg

DRUGS (3)
  1. LAMICTAL [Concomitant]
     Active Substance: LAMOTRIGINE
     Indication: EPILEPSY
     Dosage: 500 MG DAILY
     Route: 048
     Dates: start: 2010
  2. URBANYL [Concomitant]
     Active Substance: CLOBAZAM
     Indication: EPILEPSY
     Dosage: 10MG DAILY
     Route: 048
     Dates: start: 2010
  3. VIMPAT [Suspect]
     Active Substance: LACOSAMIDE
     Indication: EPILEPSY
     Dosage: 200MG DAILY
     Route: 048
     Dates: start: 2012

REACTIONS (2)
  - Pregnancy [Unknown]
  - Pregnancy on contraceptive [Unknown]

NARRATIVE: CASE EVENT DATE: 201412
